FAERS Safety Report 5814633-9 (Version None)
Quarter: 2008Q3

REPORT INFORMATION
  Report Type: 
  Country: None (occurrence: None)
  Receive Date: 20080718
  Receipt Date: 20070810
  Transmission Date: 20090109
  Serious: No
  Sender: FDA-Public Use
  Company Number: US-KINGPHARMUSA00001-K200701020

PATIENT

DRUGS (1)
  1. LEVOXYL [Suspect]

REACTIONS (6)
  - DRUG INEFFECTIVE [None]
  - DYSPHONIA [None]
  - HYPERHIDROSIS [None]
  - PALPITATIONS [None]
  - SLUGGISHNESS [None]
  - TEMPERATURE INTOLERANCE [None]
